FAERS Safety Report 7890628-9 (Version None)
Quarter: 2011Q4

REPORT INFORMATION
  Report Type: 
  Country: None (occurrence: None)
  Receive Date: 20111103
  Receipt Date: 20110722
  Transmission Date: 20120403
  Serious: No
  Sender: FDA-Public Use
  Company Number: US-AMGEN-USASP2011033746

PATIENT
  Age: 59 Year
  Sex: Female

DRUGS (3)
  1. ENBREL [Suspect]
     Indication: RHEUMATOID ARTHRITIS
     Dosage: UNK
     Dates: start: 20000101, end: 20020101
  2. TREXALL [Concomitant]
     Dates: start: 20090101
  3. PLAQUENIL [Concomitant]

REACTIONS (1)
  - DRUG INEFFECTIVE [None]
